FAERS Safety Report 25655521 (Version 1)
Quarter: 2025Q3

REPORT INFORMATION
  Report Type: Spontaneous
  Country: US (occurrence: None)
  Receive Date: 20250807
  Receipt Date: 20250807
  Transmission Date: 20251020
  Serious: Yes (Hospitalization)
  Sender: FDA-CTU
  Company Number: None

PATIENT
  Age: 13 Year
  Sex: Female
  Weight: 61.23 kg

DRUGS (2)
  1. GENOTROPIN [Suspect]
     Active Substance: SOMATROPIN
     Indication: Short stature
     Dosage: OTHER QUANTITY : 2.3 MG NIGHTLY BY ALTERNATING 2.2MG AND 2.4 MG EVE;?FREQUENCY : DAILY;?
     Route: 058
     Dates: start: 20240923
  2. VITAMIN D3 [Concomitant]
     Active Substance: CHOLECALCIFEROL

REACTIONS (1)
  - Papilloedema [None]

NARRATIVE: CASE EVENT DATE: 20250806
